FAERS Safety Report 8797045 (Version 3)
Quarter: 2015Q1

REPORT INFORMATION
  Report Type: Report from Study
  Country: US (occurrence: US)
  Receive Date: 20120919
  Receipt Date: 20150313
  Transmission Date: 20150721
  Serious: Yes (Death)
  Sender: FDA-Public Use
  Company Number: US-ROCHE-1123063

PATIENT
  Sex: Female
  Weight: 88.53 kg

DRUGS (14)
  1. ARANESP [Concomitant]
     Active Substance: DARBEPOETIN ALFA
     Route: 058
  2. LISINOPRIL. [Concomitant]
     Active Substance: LISINOPRIL
     Route: 065
  3. AVASTIN [Suspect]
     Active Substance: BEVACIZUMAB
     Indication: HAEMATOLOGICAL MALIGNANCY
     Route: 042
  4. ABRAXANE [Concomitant]
     Active Substance: PACLITAXEL
     Route: 065
  5. ALOXI [Concomitant]
     Active Substance: PALONOSETRON HYDROCHLORIDE
     Route: 042
  6. AVASTIN [Suspect]
     Active Substance: BEVACIZUMAB
     Indication: BREAST CANCER FEMALE
     Route: 042
  7. AVASTIN [Suspect]
     Active Substance: BEVACIZUMAB
     Route: 042
  8. CYTOXAN [Concomitant]
     Active Substance: CYCLOPHOSPHAMIDE
  9. VITAMIN B12 [Concomitant]
     Active Substance: CYANOCOBALAMIN
     Route: 030
  10. TAXOL [Concomitant]
     Active Substance: PACLITAXEL
  11. TAXOTERE [Concomitant]
     Active Substance: DOCETAXEL
     Route: 042
  12. ZOMETA [Concomitant]
     Active Substance: ZOLEDRONIC ACID
     Route: 042
  13. DECADRON [Concomitant]
     Active Substance: DEXAMETHASONE
     Route: 042
  14. ARMOUR THYROID [Concomitant]
     Active Substance: THYROID, PORCINE\THYROID, UNSPECIFIED

REACTIONS (23)
  - Disease progression [Fatal]
  - Back pain [Recovered/Resolved]
  - Skin infection [Unknown]
  - Pyrexia [Recovered/Resolved]
  - Erythema [Unknown]
  - Spinal pain [Unknown]
  - Rash [Unknown]
  - Neck pain [Unknown]
  - Tachycardia [Unknown]
  - Nail bed tenderness [Unknown]
  - Fatigue [Unknown]
  - Arthralgia [Recovering/Resolving]
  - Tenderness [Unknown]
  - Onychoclasis [Unknown]
  - Chills [Unknown]
  - Swelling face [Unknown]
  - Asthenia [Unknown]
  - Pain in extremity [Unknown]
  - Hypertension [Unknown]
  - Musculoskeletal chest pain [Unknown]
  - Abdominal pain [Unknown]
  - Weight decreased [Unknown]
  - Diarrhoea [Recovering/Resolving]
